FAERS Safety Report 17869933 (Version 1)
Quarter: 2020Q2

REPORT INFORMATION
  Report Type: Spontaneous
  Country: CL (occurrence: CL)
  Receive Date: 20200608
  Receipt Date: 20200608
  Transmission Date: 20200714
  Serious: Yes (Hospitalization, Other)
  Sender: FDA-Public Use
  Company Number: CL-ACCORD-184363

PATIENT
  Sex: Male
  Weight: .85 kg

DRUGS (2)
  1. CISPLATIN. [Suspect]
     Active Substance: CISPLATIN
     Indication: GASTRIC CANCER STAGE IV
     Dosage: ON DAY 1
  2. FLUOROURACIL. [Suspect]
     Active Substance: FLUOROURACIL
     Indication: GASTRIC CANCER STAGE IV
     Dosage: FOUR CYCLES, (24 HOURS INFUSION) ON DAYS 1, 2, 3, 4
     Route: 064

REACTIONS (4)
  - Foetal exposure during pregnancy [Unknown]
  - Renal failure [Unknown]
  - Respiratory failure [Unknown]
  - Cardiac failure [Unknown]
